FAERS Safety Report 10549341 (Version 2)
Quarter: 2014Q4

REPORT INFORMATION
  Report Type: Report from Study
  Country: SE (occurrence: SE)
  Receive Date: 20141028
  Receipt Date: 20141028
  Transmission Date: 20150529
  Serious: Yes (Life-Threatening, Hospitalization, Other)
  Sender: FDA-Public Use
  Company Number: SE-009507513-1007USA01925

PATIENT
  Age: 66 Year
  Sex: Male
  Weight: 103 kg

DRUGS (13)
  1. ATROVENT [Concomitant]
     Active Substance: IPRATROPIUM BROMIDE
     Dosage: 80 ?G, QD
     Route: 055
     Dates: start: 20080630
  2. BISOPROLOL [Suspect]
     Active Substance: BISOPROLOL
     Dosage: 20 MG, QD
     Route: 048
     Dates: start: 20080630, end: 20100706
  3. BRICANYL [Concomitant]
     Active Substance: TERBUTALINE SULFATE
     Dosage: 15 MG, QD
     Route: 048
     Dates: start: 20100223
  4. PROPOXYPHENE. [Concomitant]
     Active Substance: PROPOXYPHENE HYDROCHLORIDE
     Dosage: 50 MG, PRN
     Route: 048
     Dates: start: 20091006
  5. LANTUS [Concomitant]
     Active Substance: INSULIN GLARGINE
     Dosage: 56 IU, QD
     Route: 058
     Dates: start: 20071001
  6. WARFARIN [Concomitant]
     Active Substance: WARFARIN
     Dosage: 2.5 MG, QD
     Route: 048
     Dates: start: 20100611
  7. FURIX [Concomitant]
     Active Substance: FUROSEMIDE
     Dosage: 80 MG, QD
     Route: 048
     Dates: start: 20010101
  8. OMEPRAZOLE. [Concomitant]
     Active Substance: OMEPRAZOLE
     Dosage: 20 MG, QD
     Route: 048
     Dates: start: 20081031
  9. SPIRONOLACTONE. [Concomitant]
     Active Substance: SPIRONOLACTONE
     Dosage: 25 MG, QD
     Route: 048
     Dates: start: 20080702
  10. SIMVASTATIN. [Suspect]
     Active Substance: SIMVASTATIN
     Indication: ACUTE CORONARY SYNDROME
     Route: 048
     Dates: start: 20080702
  11. COZAAR [Suspect]
     Active Substance: LOSARTAN POTASSIUM
     Dosage: 100 MG, QD
     Route: 048
     Dates: start: 20080801
  12. METFORMIN [Concomitant]
     Active Substance: METFORMIN HYDROCHLORIDE
     Dosage: 2 G, QD
     Route: 048
     Dates: start: 20060101
  13. BRICANYL [Concomitant]
     Active Substance: TERBUTALINE SULFATE
     Dosage: 0.5 MG, PRN
     Route: 048
     Dates: start: 20100223

REACTIONS (2)
  - Torsade de pointes [Recovered/Resolved]
  - Bradycardia [Recovered/Resolved]

NARRATIVE: CASE EVENT DATE: 20100706
